FAERS Safety Report 25229919 (Version 1)
Quarter: 2025Q2

REPORT INFORMATION
  Report Type: Spontaneous
  Country: US (occurrence: None)
  Receive Date: 20250422
  Receipt Date: 20250422
  Transmission Date: 20250716
  Serious: Yes (Other)
  Sender: FDA-CTU
  Company Number: None

PATIENT
  Age: 67 Year
  Sex: Female

DRUGS (1)
  1. ALPRAZOLAM [Suspect]
     Active Substance: ALPRAZOLAM
     Dosage: FREQUENCY : 4 TIMES A DAY;?
     Route: 048

REACTIONS (2)
  - Seizure [None]
  - Therapy interrupted [None]

NARRATIVE: CASE EVENT DATE: 20250422
